FAERS Safety Report 8454992-4 (Version None)
Quarter: 2012Q2

REPORT INFORMATION
  Report Type: 
  Country: None (occurrence: None)
  Receive Date: 20120621
  Receipt Date: 20120611
  Transmission Date: 20120825
  Serious: Yes (Hospitalization)
  Sender: FDA-Public Use
  Company Number: JP-VERTEX PHARMACEUTICALS INC.-AE-2012-008228

PATIENT
  Age: 47 Year
  Sex: Female

DRUGS (6)
  1. REBETOL [Concomitant]
     Route: 048
     Dates: start: 20120426, end: 20120530
  2. REBETOL [Concomitant]
     Indication: HEPATITIS C
     Route: 048
     Dates: start: 20120412, end: 20120425
  3. TELAVIC (TELAPREVIR) [Suspect]
     Indication: HEPATITIS C
     Route: 048
     Dates: start: 20120412, end: 20120423
  4. TELAVIC (TELAPREVIR) [Suspect]
     Route: 048
     Dates: start: 20120511, end: 20120521
  5. PEG-INTRON [Concomitant]
     Indication: HEPATITIS C
     Route: 051
     Dates: start: 20120412, end: 20120524
  6. TELAVIC (TELAPREVIR) [Suspect]
     Route: 048
     Dates: start: 20120425, end: 20120506

REACTIONS (2)
  - RASH [None]
  - ERYTHEMA [None]
